FAERS Safety Report 12954998 (Version 9)
Quarter: 2017Q4

REPORT INFORMATION
  Report Type: Report from Study
  Country: US (occurrence: US)
  Receive Date: 20161118
  Receipt Date: 20171214
  Transmission Date: 20180320
  Serious: Yes (Hospitalization)
  Sender: FDA-Public Use
  Company Number: US-ACTELION-A-NJ2016-145631

PATIENT
  Age: 51 Year
  Sex: Female
  Weight: 45.35 kg

DRUGS (11)
  1. FUROSEMIDE. [Concomitant]
     Active Substance: FUROSEMIDE
  2. DILTIAZEM. [Concomitant]
     Active Substance: DILTIAZEM
  3. SILDENAFIL. [Concomitant]
     Active Substance: SILDENAFIL
  4. OMEPRAZOLE. [Concomitant]
     Active Substance: OMEPRAZOLE
  5. DELTASONE [Concomitant]
     Active Substance: PREDNISONE
  6. METOLAZONE. [Concomitant]
     Active Substance: METOLAZONE
  7. ZOLPIDEM [Concomitant]
     Active Substance: ZOLPIDEM\ZOLPIDEM TARTRATE
  8. OPSUMIT [Suspect]
     Active Substance: MACITENTAN
     Indication: PULMONARY HYPERTENSION
     Dosage: 10 MG, QD
     Route: 048
     Dates: start: 20150914
  9. CARTIA XT [Concomitant]
     Active Substance: DILTIAZEM HYDROCHLORIDE
  10. DIGOXIN. [Concomitant]
     Active Substance: DIGOXIN
  11. ALBUTEROL. [Concomitant]
     Active Substance: ALBUTEROL

REACTIONS (10)
  - Spinal column injury [Unknown]
  - Infection [Unknown]
  - Dyspnoea [Unknown]
  - Vomiting [Unknown]
  - Pneumonia [Unknown]
  - Chronic obstructive pulmonary disease [Unknown]
  - Drug dose omission [Unknown]
  - Oxygen saturation decreased [Unknown]
  - Malaise [Unknown]
  - Peripheral swelling [Unknown]
